FAERS Safety Report 5294394-5 (Version None)
Quarter: 2007Q2

REPORT INFORMATION
  Report Type: 
  Country: None (occurrence: None)
  Receive Date: 20070409
  Receipt Date: 20070409
  Transmission Date: 20071010
  Serious: Yes (Other)
  Sender: FDA-Public Use
  Company Number: None

PATIENT
  Age: 56 Year
  Sex: Female
  Weight: 101.2 kg

DRUGS (1)
  1. PREGABALIN [Suspect]

REACTIONS (2)
  - NAUSEA [None]
  - VOMITING [None]
